FAERS Safety Report 7561903-2 (Version None)
Quarter: 2011Q2

REPORT INFORMATION
  Report Type: 
  Country: None (occurrence: None)
  Receive Date: 20110621
  Receipt Date: 20110610
  Transmission Date: 20111010
  Serious: Yes (Other)
  Sender: FDA-Public Use
  Company Number: US-ROCHE-765845

PATIENT
  Sex: Female
  Weight: 56.7 kg

DRUGS (2)
  1. ACCUTANE [Suspect]
     Route: 065
     Dates: start: 20010318, end: 20010601
  2. ACCUTANE [Suspect]
     Indication: ACNE
     Route: 065
     Dates: start: 19990302, end: 19990411

REACTIONS (5)
  - INTESTINAL HAEMORRHAGE [None]
  - STRESS [None]
  - COLITIS ULCERATIVE [None]
  - IRON DEFICIENCY ANAEMIA [None]
  - INFLAMMATORY BOWEL DISEASE [None]
